FAERS Safety Report 10210994 (Version 1)
Quarter: 2014Q2

REPORT INFORMATION
  Report Type: Spontaneous
  Country: US (occurrence: None)
  Receive Date: 20140530
  Receipt Date: 20140530
  Transmission Date: 20141212
  Serious: Yes (Other)
  Sender: FDA-Public Use
  Company Number: None

PATIENT
  Age: 32 Year
  Sex: Female
  Weight: 88.85 kg

DRUGS (3)
  1. GENERIC LEVOTHYROXINE [Suspect]
     Indication: DRUG THERAPY
     Dates: end: 20130205
  2. ZOLOFT [Concomitant]
  3. SYNTHROID [Concomitant]

REACTIONS (6)
  - Fatigue [None]
  - Fatigue [None]
  - Pain [None]
  - Pain [None]
  - Product substitution issue [None]
  - Therapeutic response changed [None]
